FAERS Safety Report 6607247-4 (Version None)
Quarter: 2010Q1

REPORT INFORMATION
  Report Type: 
  Country: None (occurrence: None)
  Receive Date: 20100227
  Receipt Date: 20100218
  Transmission Date: 20100710
  Serious: Yes (Life-Threatening, Hospitalization)
  Sender: FDA-Public Use
  Company Number: DK-JNJFOC-20100206129

PATIENT
  Sex: Male

DRUGS (6)
  1. RISPERDAL CONSTA [Suspect]
     Indication: SCHIZOPHRENIA
     Route: 030
  2. RISPERIDONE [Suspect]
     Indication: SCHIZOPHRENIA
     Route: 048
  3. ANTICHOLINERGIC DRUGS [Suspect]
     Indication: DRUG USE FOR UNKNOWN INDICATION
     Route: 065
  4. BENZODIAZEPINES NOS [Suspect]
     Indication: DRUG USE FOR UNKNOWN INDICATION
     Route: 065
  5. STESOLID [Concomitant]
     Indication: DRUG USE FOR UNKNOWN INDICATION
     Route: 030
  6. AKINETON [Concomitant]
     Indication: DRUG USE FOR UNKNOWN INDICATION
     Route: 030

REACTIONS (9)
  - ANTICHOLINERGIC SYNDROME [None]
  - BLOOD PRESSURE ABNORMAL [None]
  - CHEST PAIN [None]
  - DYSTONIA [None]
  - EPILEPSY [None]
  - HYPOVENTILATION [None]
  - PSYCHOTIC DISORDER [None]
  - SCHIZOPHRENIA [None]
  - TREATMENT NONCOMPLIANCE [None]
